FAERS Safety Report 9982993 (Version 1)
Quarter: 2014Q1

REPORT INFORMATION
  Report Type: Report from Study
  Country: US (occurrence: US)
  Receive Date: 20140307
  Receipt Date: 20140307
  Transmission Date: 20141002
  Serious: No
  Sender: FDA-Public Use
  Company Number: US-ABBVIE-13P-163-1176775-00

PATIENT
  Age: 40 Year
  Sex: Female

DRUGS (4)
  1. HUMIRA [Suspect]
     Indication: PSORIASIS
     Dates: start: 2013
  2. VICODIN [Concomitant]
     Indication: NECK PAIN
  3. VICODIN [Concomitant]
     Indication: INTERVERTEBRAL DISC PROTRUSION
  4. UNKNOWN MEDICATION [Concomitant]
     Indication: ANXIETY

REACTIONS (1)
  - Drug dose omission [Unknown]
